FAERS Safety Report 19771225 (Version 2)
Quarter: 2021Q3

REPORT INFORMATION
  Report Type: Spontaneous
  Country: US (occurrence: US)
  Receive Date: 20210831
  Receipt Date: 20210831
  Transmission Date: 20211014
  Serious: No
  Sender: FDA-Public Use
  Company Number: US-JNJFOC-20210843927

PATIENT
  Age: 31 Year
  Sex: Male

DRUGS (1)
  1. MENS ROGAINE EXTRA STRENGTH [Suspect]
     Active Substance: MINOXIDIL
     Indication: ALOPECIA
     Dosage: DOSE: FULL CAP OF THE PLASTIC CAP
     Route: 061
     Dates: start: 202108, end: 202108

REACTIONS (3)
  - Fordyce spots [Recovered/Resolved]
  - Overdose [Unknown]
  - Application site acne [Recovered/Resolved]

NARRATIVE: CASE EVENT DATE: 202108
